FAERS Safety Report 21259789 (Version 1)
Quarter: 2022Q3

REPORT INFORMATION
  Report Type: Spontaneous
  Country: IT (occurrence: IT)
  Receive Date: 20220826
  Receipt Date: 20220826
  Transmission Date: 20221026
  Serious: Yes (Hospitalization)
  Sender: FDA-Public Use
  Company Number: None

PATIENT
  Age: 53 Year
  Sex: Female

DRUGS (1)
  1. TYSABRI [Suspect]
     Active Substance: NATALIZUMAB
     Indication: Relapsing-remitting multiple sclerosis
     Dosage: 300MG ONCE A MONTH
     Route: 050
     Dates: start: 201905, end: 20220531

REACTIONS (1)
  - Meningoencephalitis herpetic [Recovered/Resolved with Sequelae]

NARRATIVE: CASE EVENT DATE: 20220601
